FAERS Safety Report 11980631 (Version 1)
Quarter: 2016Q1

REPORT INFORMATION
  Report Type: Spontaneous
  Country: US (occurrence: US)
  Receive Date: 20160129
  Receipt Date: 20160129
  Transmission Date: 20160526
  Serious: No
  Sender: FDA-Public Use
  Company Number: US-BAYER-2016-017911

PATIENT
  Age: 43 Year
  Sex: Female

DRUGS (1)
  1. SKYLA [Suspect]
     Active Substance: LEVONORGESTREL
     Dosage: UNK
     Route: 015
     Dates: start: 20160121, end: 20160121

REACTIONS (2)
  - Device difficult to use [None]
  - Procedural pain [None]

NARRATIVE: CASE EVENT DATE: 20160121
